FAERS Safety Report 11307218 (Version 4)
Quarter: 2016Q2

REPORT INFORMATION
  Report Type: Spontaneous
  Country: US (occurrence: US)
  Receive Date: 20150723
  Receipt Date: 20160531
  Transmission Date: 20160815
  Serious: Yes (Hospitalization, Other)
  Sender: FDA-Public Use
  Company Number: US-ABBVIE-15P-163-1427753-00

PATIENT
  Sex: Female

DRUGS (1)
  1. CREON [Suspect]
     Active Substance: PANCRELIPASE AMYLASE\PANCRELIPASE LIPASE\PANCRELIPASE PROTEASE
     Indication: PRODUCT USED FOR UNKNOWN INDICATION
     Route: 065

REACTIONS (13)
  - Systemic candida [Unknown]
  - Pneumothorax [Recovered/Resolved]
  - Pneumothorax [Unknown]
  - Lung disorder [Unknown]
  - Pyrexia [Unknown]
  - Haemoptysis [Unknown]
  - Pneumothorax [Recovered/Resolved]
  - Fatigue [Unknown]
  - Constipation [Recovered/Resolved]
  - Cerebrovascular accident [Unknown]
  - Pulmonary haemorrhage [Unknown]
  - Hemiplegic migraine [Unknown]
  - Pneumothorax [Unknown]

NARRATIVE: CASE EVENT DATE: 2012
